FAERS Safety Report 10047726 (Version 1)
Quarter: 2014Q1

REPORT INFORMATION
  Report Type: Spontaneous
  Country: IT (occurrence: None)
  Receive Date: 20140327
  Receipt Date: 20140327
  Transmission Date: 20141002
  Serious: Yes (Other)
  Sender: FDA-Public Use
  Company Number: 2152990

PATIENT
  Age: 59 Year
  Sex: Male
  Weight: 77 kg

DRUGS (4)
  1. IRINOTECAN HYDROCHLORIDE [Suspect]
     Indication: CHEMOTHERAPY
     Dosage: CYCLICAL
     Dates: start: 20121223, end: 20130401
  2. FLUOROURACIL [Suspect]
     Indication: CHEMOTHERAPY
     Route: 040
     Dates: start: 20121223, end: 20130401
  3. ERBITUX [Suspect]
     Indication: COLON CANCER METASTATIC
     Route: 042
     Dates: start: 20121223, end: 20130401
  4. LEVOFOLINIC ACID [Concomitant]

REACTIONS (1)
  - Atrial fibrillation [None]
